FAERS Safety Report 8310048-2 (Version None)
Quarter: 2012Q2

REPORT INFORMATION
  Report Type: 
  Country: None (occurrence: None)
  Receive Date: 20120423
  Receipt Date: 20120416
  Transmission Date: 20120825
  Serious: Yes (Hospitalization)
  Sender: FDA-Public Use
  Company Number: 2012SP019665

PATIENT
  Age: 51 Year
  Sex: Female

DRUGS (9)
  1. NEXIUM [Concomitant]
  2. ISENTRESS [Concomitant]
  3. BISOPROLOL FUMARATE [Concomitant]
  4. RAMIPRIL [Concomitant]
  5. ALDACTONE [Concomitant]
  6. PREZISTA [Concomitant]
  7. PRAVASTATIN [Concomitant]
  8. NASONEX [Suspect]
     Indication: SINUSITIS
     Dosage: 50 MCG;;NAS
     Route: 045
     Dates: start: 20120206, end: 20120327
  9. NORVIR [Suspect]
     Indication: HIV TEST POSITIVE
     Dosage: 100 MG;BID;PO
     Route: 048
     Dates: start: 20110114

REACTIONS (4)
  - DRUG INTERACTION [None]
  - MOTOR DYSFUNCTION [None]
  - CUSHING'S SYNDROME [None]
  - MOVEMENT DISORDER [None]
